FAERS Safety Report 13843248 (Version 2)
Quarter: 2017Q3

REPORT INFORMATION
  Report Type: Report from Study
  Country: US (occurrence: US)
  Receive Date: 20170808
  Receipt Date: 20170818
  Transmission Date: 20171127
  Serious: No
  Sender: FDA-Public Use
  Company Number: PHEH2017US024726

PATIENT
  Age: 2 Year
  Sex: Female
  Weight: 11.52 kg

DRUGS (3)
  1. OMNITROPE [Suspect]
     Active Substance: SOMATROPIN
     Indication: PRADER-WILLI SYNDROME
     Dosage: 0.2 MG, QD,  7 DAYS/W EEK
     Route: 058
  2. OMNITROPE [Suspect]
     Active Substance: SOMATROPIN
     Indication: CHONDRODYSTROPHY
     Dosage: 0.3 MG, QD X 7 DAYS/W EEK
     Route: 058
     Dates: start: 201703
  3. LEVOTHYROXINE. [Concomitant]
     Active Substance: LEVOTHYROXINE
     Indication: PRODUCT USED FOR UNKNOWN INDICATION
     Route: 065

REACTIONS (5)
  - Abnormal behaviour [Unknown]
  - Insulin-like growth factor increased [Not Recovered/Not Resolved]
  - Device leakage [Not Recovered/Not Resolved]
  - Injection site pain [Not Recovered/Not Resolved]
  - Scratch [Not Recovered/Not Resolved]

NARRATIVE: CASE EVENT DATE: 20170810
